FAERS Safety Report 5424348-7 (Version None)
Quarter: 2007Q3

REPORT INFORMATION
  Report Type: 
  Country: None (occurrence: None)
  Receive Date: 20070731
  Receipt Date: 20070601
  Transmission Date: 20080115
  Serious: No
  Sender: FDA-Public Use
  Company Number: US200706000278

PATIENT
  Age: 64 Year
  Sex: Female

DRUGS (4)
  1. BYETTA [Suspect]
     Indication: TYPE 2 DIABETES MELLITUS
     Dosage: 5 UG, 2/D, SUBCUTANEOUS; 10 UG, 2/D, SUBCUTANEOUS
     Route: 058
     Dates: start: 20070501, end: 20070501
  2. BYETTA [Suspect]
     Indication: TYPE 2 DIABETES MELLITUS
     Dosage: 5 UG, 2/D, SUBCUTANEOUS; 10 UG, 2/D, SUBCUTANEOUS
     Route: 058
     Dates: start: 20070530
  3. BYETTA [Suspect]
  4. EXENATIDE PEN, DISPOSABLE DEVICE (EXENATIDE PEN PEN,DISPOSABLE) [Concomitant]

REACTIONS (5)
  - BLOOD GLUCOSE INCREASED [None]
  - FALL [None]
  - NAUSEA [None]
  - OEDEMA PERIPHERAL [None]
  - VOMITING [None]
